FAERS Safety Report 23978738 (Version 1)
Quarter: 2024Q2

REPORT INFORMATION
  Report Type: Spontaneous
  Country: BR (occurrence: BR)
  Receive Date: 20240615
  Receipt Date: 20240615
  Transmission Date: 20240715
  Serious: Yes (Hospitalization, Other)
  Sender: FDA-Public Use
  Company Number: BR-GLAXOSMITHKLINE-BR2024AMR072780

PATIENT

DRUGS (4)
  1. ALBUTEROL [Suspect]
     Active Substance: ALBUTEROL
     Indication: Product used for unknown indication
     Dosage: 4 PUFF(S), QID, 100 MCG, 1 VIAL
     Route: 055
  2. AZITHROMYCIN [Concomitant]
     Active Substance: AZITHROMYCIN
     Indication: Product used for unknown indication
     Dosage: 1 DF, QD, 500 MG, 1 BOX
     Route: 048
  3. PREDNISONE [Concomitant]
     Active Substance: PREDNISONE
     Indication: Product used for unknown indication
     Dosage: 1 DF, QD, 20 MG, 1 BOX
     Route: 048
  4. BECLOMETHASONE DIPROPIONATE [Concomitant]
     Active Substance: BECLOMETHASONE DIPROPIONATE
     Indication: Product used for unknown indication
     Dosage: 2 PUFF(S), BID, 250 MCG - 1 VIAL
     Route: 055

REACTIONS (14)
  - Obstructive airways disorder [Unknown]
  - Condition aggravated [Unknown]
  - Surgery [Unknown]
  - Tracheomalacia [Unknown]
  - Barrett^s oesophagus [Unknown]
  - Hypertension [Unknown]
  - Asthma [Unknown]
  - Hiatus hernia [Unknown]
  - Oesophageal motility disorder [Unknown]
  - Oesophageal disorder [Unknown]
  - Abdominal pain [Unknown]
  - Gastrooesophageal reflux disease [Unknown]
  - Reflux laryngitis [Unknown]
  - Product use issue [Unknown]
